FAERS Safety Report 6655411-0 (Version None)
Quarter: 2010Q1

REPORT INFORMATION
  Report Type: 
  Country: None (occurrence: None)
  Receive Date: 20100329
  Receipt Date: 20100223
  Transmission Date: 20100710
  Serious: No
  Sender: FDA-Public Use
  Company Number: US-BAYER-201012443BCC

PATIENT
  Age: 65 Year
  Sex: Female
  Weight: 63 kg

DRUGS (9)
  1. ALEVE (CAPLET) [Suspect]
     Indication: JOINT SWELLING
     Dosage: TOTAL DAILY DOSE: 880 MG  UNIT DOSE: 220 MG
     Route: 048
     Dates: start: 20100219
  2. ALEVE (CAPLET) [Suspect]
     Dosage: TOTAL DAILY DOSE: 440 MG  UNIT DOSE: 220 MG
     Route: 048
     Dates: start: 20100218, end: 20100218
  3. PANTOPRAZOLE [Concomitant]
     Route: 065
  4. FOSAMAX [Concomitant]
     Route: 065
  5. ZYRTEC [Concomitant]
     Route: 065
  6. FISH OIL SUPPLEMENT [Concomitant]
     Route: 065
  7. MULTI-VITAMIN [Concomitant]
     Route: 065
  8. VITAMIN D-3 [Concomitant]
     Route: 065
  9. NEUROSTIMULATOR (INTER-STEM) [Concomitant]
     Route: 065

REACTIONS (9)
  - BURNING SENSATION [None]
  - ERYTHEMA [None]
  - HYPERSENSITIVITY [None]
  - JOINT SWELLING [None]
  - PRURITUS [None]
  - RASH MACULAR [None]
  - SKIN DISCOLOURATION [None]
  - SKIN DISCOMFORT [None]
  - URTICARIA [None]
